FAERS Safety Report 16565038 (Version 1)
Quarter: 2019Q3

REPORT INFORMATION
  Report Type: Report from Study
  Country: CA (occurrence: CA)
  Receive Date: 20190712
  Receipt Date: 20190712
  Transmission Date: 20191004
  Serious: Yes (Death, Other)
  Sender: FDA-Public Use
  Company Number: PHHY2019CA058278

PATIENT
  Sex: Female

DRUGS (5)
  1. CAPECITABINE. [Concomitant]
     Active Substance: CAPECITABINE
     Dosage: 2 DF, UNK
     Route: 065
  2. TYKERB [Suspect]
     Active Substance: LAPATINIB DITOSYLATE
     Dosage: 1000 MG, UNK
     Route: 048
  3. TYKERB [Suspect]
     Active Substance: LAPATINIB DITOSYLATE
     Indication: BREAST CANCER METASTATIC
     Dosage: 1250 MG, UNK
     Route: 048
     Dates: start: 20190302
  4. CAPECITABINE. [Concomitant]
     Active Substance: CAPECITABINE
     Indication: PRODUCT USED FOR UNKNOWN INDICATION
     Dosage: 3 DF, UNK
     Route: 065
  5. CAPECITABINE. [Concomitant]
     Active Substance: CAPECITABINE
     Dosage: (SMALL PILL)
     Route: 065

REACTIONS (12)
  - Diarrhoea [Recovered/Resolved]
  - Drug ineffective [Unknown]
  - Vomiting [Unknown]
  - Lip pain [Recovered/Resolved]
  - Lip swelling [Recovered/Resolved]
  - Nausea [Unknown]
  - Memory impairment [Unknown]
  - General physical health deterioration [Fatal]
  - Balance disorder [Unknown]
  - Hypersensitivity [Unknown]
  - Dry mouth [Recovering/Resolving]
  - Metastases to central nervous system [Recovering/Resolving]
